FAERS Safety Report 10489375 (Version 1)
Quarter: 2014Q3

REPORT INFORMATION
  Report Type: Spontaneous
  Country: CA (occurrence: None)
  Receive Date: 20140930
  Receipt Date: 20140930
  Transmission Date: 20150326
  Serious: Yes (Other)
  Sender: FDA-Public Use
  Company Number: CA-017157

PATIENT
  Age: 69 Year
  Sex: Male

DRUGS (8)
  1. FIRMAGON [Suspect]
     Active Substance: DEGARELIX ACETATE
     Indication: PROSTATE CANCER
     Dosage: 8MG 1X/MONTH SUBCUTANEOUS
     Route: 058
     Dates: start: 20140722
  2. LIPITOR [Concomitant]
     Active Substance: ATORVASTATIN CALCIUM
  3. VITAMIN D [Concomitant]
     Active Substance: CHOLECALCIFEROL
  4. SYNTHROID [Concomitant]
     Active Substance: LEVOTHYROXINE SODIUM
  5. AVODART [Concomitant]
     Active Substance: DUTASTERIDE
  6. NORVASC [Concomitant]
     Active Substance: AMLODIPINE BESYLATE
  7. ATENOLOL. [Concomitant]
     Active Substance: ATENOLOL
  8. ATIVAN [Concomitant]
     Active Substance: LORAZEPAM

REACTIONS (1)
  - Radiotherapy [None]

NARRATIVE: CASE EVENT DATE: 20140908
